FAERS Safety Report 4338812-5 (Version None)
Quarter: 2004Q2

REPORT INFORMATION
  Report Type: 
  Country: None (occurrence: None)
  Receive Date: 20040409
  Receipt Date: 20040330
  Transmission Date: 20050107
  Serious: Yes (Death, Hospitalization, Other)
  Sender: FDA-Public Use
  Company Number: 2004001928

PATIENT
  Age: 78 Year
  Sex: Male

DRUGS (5)
  1. ZITHROMAX [Suspect]
     Indication: INFECTION PROPHYLAXIS
     Dosage: 500 MG , ORAL
     Route: 048
     Dates: start: 20031216
  2. MORPHINE SULFATE [Concomitant]
  3. LORNOXICAM (LORNOXICAM) [Concomitant]
  4. BENIDIPINE HYDROCHLORIDE (BENIDIPINE HYDROCHLORIDE) [Concomitant]
  5. DIGOXIN [Concomitant]

REACTIONS (4)
  - CONDITION AGGRAVATED [None]
  - FALL [None]
  - LUNG DISORDER [None]
  - SHOCK [None]
